FAERS Safety Report 9819389 (Version 1)
Quarter: 2014Q1

REPORT INFORMATION
  Report Type: Spontaneous
  Country: NG (occurrence: None)
  Receive Date: 20140112
  Receipt Date: 20140112
  Transmission Date: 20141002
  Serious: Yes (Life-Threatening)
  Sender: FDA-Public Use
  Company Number: 2013-NG-004972

PATIENT
  Age: 46 Year
  Sex: Male

DRUGS (1)
  1. CLOZAPINE [Suspect]
     Indication: SCHIZOPHRENIA
     Dosage: 300 MG, QD, ORAL
     Route: 048

REACTIONS (2)
  - Haematemesis [None]
  - Upper gastrointestinal haemorrhage [None]
